FAERS Safety Report 8322418 (Version 5)
Quarter: 2013Q3

REPORT INFORMATION
  Report Type: Report from Study
  Country: CA (occurrence: CA)
  Receive Date: 20120105
  Receipt Date: 20130913
  Transmission Date: 20140515
  Serious: Yes (Hospitalization)
  Sender: FDA-Public Use
  Company Number: CA-ABBOTT-11P-028-0874355-01

PATIENT
  Age: 75 Year
  Sex: Male

DRUGS (14)
  1. HUMIRA [Suspect]
     Indication: PSORIASIS
     Route: 058
     Dates: start: 200401
  2. HUMIRA [Suspect]
     Route: 058
     Dates: start: 20100328, end: 20110523
  3. HUMIRA [Suspect]
     Route: 058
     Dates: start: 20110628
  4. HYDROCHLOROTHIAZIDE [Concomitant]
     Indication: HYPERTENSION
     Dates: start: 2009
  5. LORAZEPAM [Concomitant]
     Indication: DEPRESSION
     Dates: start: 1991
  6. MELOXICAM [Concomitant]
     Indication: ARTHRITIS
     Dates: start: 2000
  7. GLYBURIDE [Concomitant]
     Indication: TYPE 2 DIABETES MELLITUS
     Dates: start: 1996
  8. METFORMIN [Concomitant]
     Indication: TYPE 2 DIABETES MELLITUS
     Dates: start: 1986
  9. CRESTOR [Concomitant]
     Indication: PERIPHERAL VASCULAR DISORDER
     Dates: start: 2010
  10. COVERSYL [Concomitant]
     Indication: PERIPHERAL VASCULAR DISORDER
     Dates: start: 2010
  11. TYLENOL WITH CODEINE NO.3 [Concomitant]
     Indication: BACK PAIN
     Dosage: 1-2 TABLETS
     Route: 048
  12. TYLENOL WITH CODEINE NO.3 [Concomitant]
     Indication: ARTHRALGIA
  13. AMLODIPINE [Concomitant]
     Indication: HYPERTENSION
     Dates: start: 2009
  14. APO-AMILZIDE [Concomitant]
     Indication: HYPERTENSION
     Dosage: 50/5
     Dates: start: 2009

REACTIONS (1)
  - Intervertebral disc degeneration [Recovered/Resolved]
